FAERS Safety Report 7505933-5 (Version None)
Quarter: 2011Q2

REPORT INFORMATION
  Report Type: 
  Country: None (occurrence: None)
  Receive Date: 20110411
  Receipt Date: 20110117
  Transmission Date: 20111010
  Serious: Yes (Life-Threatening, Hospitalization)
  Sender: FDA-Public Use
  Company Number: AE 2011-015

PATIENT
  Age: 30 Year
  Sex: Male

DRUGS (4)
  1. DEPAKOTE [Concomitant]
  2. ZYPREXA [Concomitant]
  3. FAZACLO ODT [Suspect]
     Indication: PSYCHOTIC DISORDER
     Dosage: 300 MG TWICE DAILY PO
     Route: 048
     Dates: start: 20101212, end: 20101226
  4. KLONOPIN [Concomitant]

REACTIONS (1)
  - MYOCARDITIS [None]
